FAERS Safety Report 16715629 (Version 1)
Quarter: 2019Q3

REPORT INFORMATION
  Report Type: Report from Study
  Country: PH (occurrence: PH)
  Receive Date: 20190819
  Receipt Date: 20190819
  Transmission Date: 20191005
  Serious: Yes (Life-Threatening, Other)
  Sender: FDA-Public Use
  Company Number: PH-OTSUKA-2019_029728

PATIENT
  Age: 19 Year
  Sex: Female

DRUGS (2)
  1. ARIPIPRAZOLE. [Suspect]
     Active Substance: ARIPIPRAZOLE
     Dosage: 10 MG 1/2 TABLET A DAY
     Route: 065
     Dates: start: 2019
  2. ARIPIPRAZOLE. [Suspect]
     Active Substance: ARIPIPRAZOLE
     Indication: BIPOLAR DISORDER
     Dosage: 10 MG, QD (ONE TABLET)
     Route: 065
     Dates: start: 201901, end: 2019

REACTIONS (1)
  - Eye movement disorder [Recovered/Resolved with Sequelae]

NARRATIVE: CASE EVENT DATE: 201907
